FAERS Safety Report 16174034 (Version 1)
Quarter: 2019Q2

REPORT INFORMATION
  Report Type: Spontaneous
  Country: US (occurrence: US)
  Receive Date: 20190409
  Receipt Date: 20190409
  Transmission Date: 20190711
  Serious: No
  Sender: FDA-Public Use
  Company Number: US-ELI_LILLY_AND_COMPANY-US201904002229

PATIENT
  Sex: Female

DRUGS (2)
  1. TRULICITY [Suspect]
     Active Substance: DULAGLUTIDE
     Indication: PRODUCT USED FOR UNKNOWN INDICATION
     Dosage: .75 MG, WEEKLY (1/W)
     Route: 058
  2. TRULICITY [Suspect]
     Active Substance: DULAGLUTIDE
     Dosage: .75 MG, WEEKLY (1/W)
     Route: 058

REACTIONS (10)
  - Eating disorder [Unknown]
  - Fatigue [Unknown]
  - Blood pressure increased [Unknown]
  - Anger [Unknown]
  - Dysphagia [Unknown]
  - Vomiting [Unknown]
  - Gastric disorder [Unknown]
  - Headache [Unknown]
  - Blood glucose decreased [Unknown]
  - Abdominal pain upper [Unknown]
